FAERS Safety Report 13953005 (Version 1)
Quarter: 2017Q3

REPORT INFORMATION
  Report Type: Spontaneous
  Country: GB (occurrence: GB)
  Receive Date: 20170911
  Receipt Date: 20170911
  Transmission Date: 20171128
  Serious: Yes (Other)
  Sender: FDA-Public Use
  Company Number: GB-UCBSA-2017035749

PATIENT
  Age: 29 Year
  Sex: Male

DRUGS (7)
  1. MIDAZOLAM [Concomitant]
     Indication: PRODUCT USED FOR UNKNOWN INDICATION
     Dosage: 60 MG, UNK
     Route: 002
  2. VIMPAT [Suspect]
     Active Substance: LACOSAMIDE
     Dosage: 450 MG, ONCE DAILY (QD)
     Route: 048
     Dates: start: 20170519
  3. VIMPAT [Suspect]
     Active Substance: LACOSAMIDE
     Indication: PRODUCT USED FOR UNKNOWN INDICATION
     Dosage: UNK
     Route: 048
     Dates: start: 2009
  4. LORAZEPAM [Concomitant]
     Indication: PRODUCT USED FOR UNKNOWN INDICATION
  5. TOPAMAX [Concomitant]
     Indication: PRODUCT USED FOR UNKNOWN INDICATION
  6. VIMPAT [Suspect]
     Active Substance: LACOSAMIDE
     Dosage: 400 MG DAILY
     Route: 048
  7. OXYGEN [Concomitant]
     Indication: PRODUCT USED FOR UNKNOWN INDICATION
     Dosage: UNK

REACTIONS (7)
  - Exophthalmos [Not Recovered/Not Resolved]
  - Immunosuppression [Unknown]
  - Dizziness [Not Recovered/Not Resolved]
  - Therapeutic response delayed [Unknown]
  - Seizure cluster [Unknown]
  - Ocular discomfort [Unknown]
  - Intentional product misuse [Unknown]

NARRATIVE: CASE EVENT DATE: 20170519
